FAERS Safety Report 11032446 (Version 1)
Quarter: 2015Q2

REPORT INFORMATION
  Report Type: Spontaneous
  Country: US (occurrence: US)
  Receive Date: 20150415
  Receipt Date: 20150415
  Transmission Date: 20150821
  Serious: Yes (Other)
  Sender: FDA-Public Use
  Company Number: US-ASTRAZENECA-2015SE32811

PATIENT
  Sex: Female

DRUGS (24)
  1. ZOLOFT [Suspect]
     Active Substance: SERTRALINE HYDROCHLORIDE
     Route: 065
  2. LYRICA [Suspect]
     Active Substance: PREGABALIN
     Indication: SEIZURE
     Dosage: 2 TABLET EVERY MORNING 9AM AND 2 TABLET AT NIGHT 9PM
     Route: 065
  3. FOSAMAX [Concomitant]
     Active Substance: ALENDRONATE SODIUM
  4. EFFEXOR [Suspect]
     Active Substance: VENLAFAXINE HYDROCHLORIDE
     Route: 065
  5. LYRICA [Suspect]
     Active Substance: PREGABALIN
     Indication: SEIZURE
     Dosage: 2 TABLET EVERY MORNING AND 2 TABLET AT NIGHT
     Route: 048
     Dates: start: 20150316
  6. TENORMIN [Concomitant]
     Active Substance: ATENOLOL
  7. DME [Concomitant]
     Dosage: GENARIC (DME ?RECURRING)
  8. VITAMIN COMPLAX [Concomitant]
     Dosage: 1000 UNITS
  9. LYRICA [Suspect]
     Active Substance: PREGABALIN
     Indication: OSTEOARTHRITIS
     Dosage: 2 TABLET EVERY MORNING 9AM AND 2 TABLET AT NIGHT 9PM
     Route: 065
  10. CALCIUM 600+D ORAL [Concomitant]
  11. AMBIEN [Concomitant]
     Active Substance: ZOLPIDEM TARTRATE
  12. PRILOSEC [Concomitant]
     Active Substance: OMEPRAZOLE MAGNESIUM
  13. VITAMIN D [Concomitant]
     Active Substance: CHOLECALCIFEROL
     Dosage: 1000 UNIT
  14. FISH OIL [Concomitant]
     Active Substance: FISH OIL
  15. KENALOG [Concomitant]
     Active Substance: TRIAMCINOLONE ACETONIDE
  16. SEROQUEL [Suspect]
     Active Substance: QUETIAPINE FUMARATE
     Route: 048
  17. ECOTRIN [Concomitant]
     Active Substance: ASPIRIN
  18. K-DUR,KLOR-CON [Concomitant]
  19. VALIUM [Concomitant]
     Active Substance: DIAZEPAM
  20. ROXICODONE [Concomitant]
     Active Substance: OXYCODONE HYDROCHLORIDE
     Dosage: 5 MG IMMEDIATE RELEOSELEB
  21. ZONEGRAN [Concomitant]
     Active Substance: ZONISAMIDE
  22. LYRICA [Suspect]
     Active Substance: PREGABALIN
     Indication: OSTEOARTHRITIS
     Dosage: 2 TABLET EVERY MORNING AND 2 TABLET AT NIGHT
     Route: 048
     Dates: start: 20150316
  23. ELAVIL [Concomitant]
     Active Substance: AMITRIPTYLINE HYDROCHLORIDE
  24. MEVACOR [Concomitant]
     Active Substance: LOVASTATIN

REACTIONS (9)
  - Cervical radiculopathy [Unknown]
  - Seizure [Unknown]
  - Osteoarthritis [Unknown]
  - Drug hypersensitivity [Unknown]
  - Swelling [Unknown]
  - Neuropathy peripheral [Unknown]
  - Hyperlipidaemia [Unknown]
  - Anxiety [Unknown]
  - Hypertension [Unknown]
